FAERS Safety Report 5474336-X (Version None)
Quarter: 2007Q4

REPORT INFORMATION
  Report Type: 
  Country: None (occurrence: None)
  Receive Date: 20071002
  Receipt Date: 20070925
  Transmission Date: 20080405
  Serious: Yes (Other)
  Sender: FDA-Public Use
  Company Number: PHBS2007MY15890

PATIENT
  Age: 32 Year
  Sex: Female
  Weight: 54 kg

DRUGS (1)
  1. CAFERGOT [Suspect]
     Indication: VASCULAR HEADACHE
     Dosage: 1 MG, ONCE/SINGLE
     Route: 048
     Dates: start: 20070915, end: 20070915

REACTIONS (4)
  - ABDOMINAL DISTENSION [None]
  - DYSPNOEA [None]
  - EYE SWELLING [None]
  - NAUSEA [None]
